FAERS Safety Report 24087789 (Version 2)
Quarter: 2024Q3

REPORT INFORMATION
  Report Type: Spontaneous
  Country: CN (occurrence: CN)
  Receive Date: 20240715
  Receipt Date: 20240909
  Transmission Date: 20241016
  Serious: Yes (Other)
  Sender: Evive Biotechnology
  Company Number: CN-EVIVE BIOTECHNOLOGY SINGAPORE PTE. LTD.-EVI-CN-2024-000021

PATIENT
  Sex: Male

DRUGS (1)
  1. RYZNEUTA [Suspect]
     Active Substance: EFBEMALENOGRASTIM ALFA-VUXW
     Indication: Neutropenia
     Dosage: 20 MILLIGRAM
     Route: 058
     Dates: start: 20240701, end: 20240701

REACTIONS (2)
  - Syncope [Recovering/Resolving]
  - Hypoaesthesia oral [Recovering/Resolving]

NARRATIVE: CASE EVENT DATE: 20240701
